FAERS Safety Report 17336445 (Version 4)
Quarter: 2020Q3

REPORT INFORMATION
  Report Type: Spontaneous
  Country: US (occurrence: US)
  Receive Date: 20200128
  Receipt Date: 20200804
  Transmission Date: 20201102
  Serious: No
  Sender: FDA-Public Use
  Company Number: US-JNJFOC-20200131366

PATIENT
  Age: 53 Year
  Sex: Male

DRUGS (1)
  1. STELARA [Suspect]
     Active Substance: USTEKINUMAB
     Indication: PSORIASIS
     Dosage: THERAPY ONSET DATE: MAY/2019
     Route: 058
     Dates: start: 201905

REACTIONS (3)
  - Accidental exposure to product [Recovered/Resolved]
  - Product dose omission issue [Unknown]
  - Device malfunction [Unknown]

NARRATIVE: CASE EVENT DATE: 20200116
